FAERS Safety Report 18265727 (Version 2)
Quarter: 2020Q3

REPORT INFORMATION
  Report Type: Other
  Country: JP (occurrence: JP)
  Receive Date: 20200914
  Receipt Date: 20200927
  Transmission Date: 20201103
  Serious: Yes (Hospitalization, Other)
  Sender: FDA-Public Use
  Company Number: JP-ROCHE-2676193

PATIENT
  Age: 20 Year
  Sex: Female

DRUGS (1)
  1. ACTEMRA [Suspect]
     Active Substance: TOCILIZUMAB
     Indication: STILL^S DISEASE
     Dosage: DOSAGE IS UNCERTAIN.
     Route: 058

REACTIONS (4)
  - Off label use [Unknown]
  - Pulmonary arterial hypertension [Recovering/Resolving]
  - Still^s disease [Recovering/Resolving]
  - Intentional product use issue [Unknown]
